FAERS Safety Report 4870530-7 (Version None)
Quarter: 2005Q4

REPORT INFORMATION
  Report Type: 
  Country: None (occurrence: None)
  Receive Date: 20051228
  Receipt Date: 20051212
  Transmission Date: 20060501
  Serious: Yes (Other)
  Sender: FDA-Public Use
  Company Number: US200512002131

PATIENT
  Age: 58 Year
  Sex: Female
  Weight: 80.7 kg

DRUGS (7)
  1. ZYPREXA [Suspect]
     Indication: AFFECTIVE DISORDER
     Dosage: SEE IMAGE
     Route: 048
     Dates: start: 20020101
  2. ZYPREXA [Suspect]
     Indication: AFFECTIVE DISORDER
     Dosage: SEE IMAGE
     Route: 048
     Dates: start: 20050912
  3. LEVOTHYROXINE SODIUM [Concomitant]
  4. LEXAPRO   /USA/  (ESCITALOPRAM) [Concomitant]
  5. CLONAZEPAM [Concomitant]
  6. TOPROL-XL [Concomitant]
  7. BENICAR  /USA/ (OLMESARTAN MEDOXOMIL) [Concomitant]

REACTIONS (8)
  - FEELING ABNORMAL [None]
  - FOOD CRAVING [None]
  - HYPOGLYCAEMIA [None]
  - INCREASED APPETITE [None]
  - INSULIN RESISTANCE [None]
  - MITRAL VALVE PROLAPSE [None]
  - PRODUCTIVE COUGH [None]
  - WEIGHT INCREASED [None]
